FAERS Safety Report 9621222 (Version 3)
Quarter: 2013Q4

REPORT INFORMATION
  Report Type: Report from Study
  Country: US (occurrence: US)
  Receive Date: 20131015
  Receipt Date: 20131216
  Transmission Date: 20140711
  Serious: Yes (Hospitalization)
  Sender: FDA-Public Use
  Company Number: PHEH2013US020037

PATIENT
  Age: 52 Year
  Sex: Female

DRUGS (4)
  1. DIOVAN [Suspect]
     Indication: HYPERTENSION
     Dosage: 160 MG, QD
     Route: 048
  2. ATORVASTATIN [Concomitant]
     Indication: LIPIDS ABNORMAL
     Dosage: 10 MG, DAILY
     Route: 048
  3. ALPRAZOLAM [Concomitant]
     Indication: ANXIETY
     Dosage: 0.5 UKN, DAILY
     Route: 048
  4. VIT D [Concomitant]
     Dosage: 400 U, DAILY
     Route: 048

REACTIONS (6)
  - Feeling abnormal [Unknown]
  - Stress [Unknown]
  - Malaise [Unknown]
  - Head discomfort [Unknown]
  - Chest pain [Recovered/Resolved]
  - Paraesthesia [Recovered/Resolved]
